FAERS Safety Report 7776707-5 (Version None)
Quarter: 2011Q3

REPORT INFORMATION
  Report Type: 
  Country: None (occurrence: None)
  Receive Date: 20110926
  Receipt Date: 20110919
  Transmission Date: 20111222
  Serious: Yes (Hospitalization)
  Sender: FDA-Public Use
  Company Number: US-JNJFOC-20110908264

PATIENT
  Age: 65 Year
  Sex: Male
  Weight: 94 kg

DRUGS (11)
  1. LISINOPRIL [Concomitant]
  2. NORVASC [Concomitant]
  3. PERCOCET [Concomitant]
  4. COLCRYS [Concomitant]
  5. PHENERGAN HCL [Concomitant]
  6. KEFLEX [Concomitant]
  7. AMBIEN [Concomitant]
  8. XARELTO [Suspect]
     Indication: KNEE OPERATION
     Route: 048
     Dates: start: 20110918
  9. ASPIRIN [Concomitant]
  10. LOVENOX [Suspect]
     Indication: PRODUCT USED FOR UNKNOWN INDICATION
  11. NAPROSYN [Concomitant]

REACTIONS (1)
  - INTESTINAL OPERATION [None]
